FAERS Safety Report 25852515 (Version 3)
Quarter: 2025Q4

REPORT INFORMATION
  Report Type: Spontaneous
  Country: US (occurrence: US)
  Receive Date: 20250926
  Receipt Date: 20251224
  Transmission Date: 20260117
  Serious: Yes (Other)
  Sender: NOVO NORDISK
  Company Number: US-NOVOPROD-1527050

PATIENT
  Age: 46 Year
  Sex: Female
  Weight: 151 kg

DRUGS (5)
  1. OZEMPIC [Suspect]
     Active Substance: SEMAGLUTIDE
     Indication: Weight control
     Dosage: 2 MG, QW
     Dates: end: 20250207
  2. OZEMPIC [Suspect]
     Active Substance: SEMAGLUTIDE
     Indication: Insulin resistance
     Dosage: 0.5 MG
     Dates: start: 20220427
  3. HYDROXYUREA [Concomitant]
     Active Substance: HYDROXYUREA
     Dosage: 500 MG, QD (WITH 500 MG EVERY OTHER MORNING)
  4. HYDROXYUREA [Concomitant]
     Active Substance: HYDROXYUREA
     Indication: Polycythaemia vera
     Dosage: 1000 MG, QD
  5. WARFARIN [Concomitant]
     Active Substance: WARFARIN
     Indication: Cerebral venous sinus thrombosis
     Dosage: 3.75 MG (M,W,F)
     Dates: start: 2018

REACTIONS (5)
  - Cerebral venous sinus thrombosis [Unknown]
  - Condition aggravated [Unknown]
  - Weight increased [Unknown]
  - Product use issue [Unknown]
  - Product use in unapproved indication [Unknown]

NARRATIVE: CASE EVENT DATE: 20220427
